FAERS Safety Report 6050996-X (Version None)
Quarter: 2009Q1

REPORT INFORMATION
  Report Type: 
  Country: None (occurrence: None)
  Receive Date: 20090126
  Receipt Date: 20081117
  Transmission Date: 20090719
  Serious: No
  Sender: FDA-Public Use
  Company Number: US-TYCO HEALTHCARE/MALLINCKRODT-T200801978

PATIENT

DRUGS (1)
  1. OPTIRAY 300 [Suspect]
     Dosage: 100 ML (CC), SINGLE
     Route: 042
     Dates: start: 20081114, end: 20081114

REACTIONS (2)
  - EYE PRURITUS [None]
  - ORAL PRURITUS [None]
